FAERS Safety Report 7559939-0 (Version None)
Quarter: 2011Q2

REPORT INFORMATION
  Report Type: 
  Country: None (occurrence: None)
  Receive Date: 20110621
  Receipt Date: 20110607
  Transmission Date: 20111010
  Serious: Yes (Other)
  Sender: FDA-Public Use
  Company Number: PHHY2011CA51119

PATIENT

DRUGS (5)
  1. BETA BLOCKING AGENTS [Concomitant]
  2. ALISKIREN [Suspect]
     Dosage: UNK
     Dates: end: 20100815
  3. CALCIUM CHANNEL BLOCKERS [Concomitant]
  4. DIURETICS [Concomitant]
  5. ANGIOTENSIN II ANTAGONISTS [Concomitant]

REACTIONS (2)
  - BLOOD PRESSURE DIASTOLIC DECREASED [None]
  - URINE ALBUMIN/CREATININE RATIO INCREASED [None]
